FAERS Safety Report 4629787-X (Version None)
Quarter: 2005Q2

REPORT INFORMATION
  Report Type: 
  Country: None (occurrence: None)
  Receive Date: 20050407
  Receipt Date: 20050324
  Transmission Date: 20051028
  Serious: Yes (Death, Hospitalization)
  Sender: FDA-Public Use
  Company Number: FABR-10574

PATIENT
  Age: 52 Year
  Sex: Male
  Weight: 56 kg

DRUGS (9)
  1. FABRAZYME [Suspect]
     Indication: FABRY'S DISEASE
     Dosage: 1 MG/KG QWKS IV
     Route: 042
     Dates: start: 20030821, end: 20040422
  2. FLECAINIDE ACETATE [Concomitant]
  3. DIPYRIDAMOLE [Concomitant]
  4. ASPIRIN [Concomitant]
  5. ACETAMINOPHEN [Concomitant]
  6. HYDROXYZINE [Concomitant]
  7. BIFIDOBACTERIUM 4 [Concomitant]
  8. MAGNESIUM OXIDE [Concomitant]
  9. FAMOTIDINE [Concomitant]

REACTIONS (20)
  - ANAEMIA [None]
  - ANGIOKERATOMA [None]
  - ARRHYTHMIA [None]
  - ATRIAL FIBRILLATION [None]
  - BLOOD CREATININE INCREASED [None]
  - BLOOD UREA INCREASED [None]
  - C-REACTIVE PROTEIN INCREASED [None]
  - CAROTID ARTERY OCCLUSION [None]
  - CEREBRAL INFARCTION [None]
  - CEREBROVASCULAR DISORDER [None]
  - COMA [None]
  - CONVULSION [None]
  - DISEASE RECURRENCE [None]
  - HAEMATOMA [None]
  - HYPOTENSION [None]
  - INTRACRANIAL ANEURYSM [None]
  - SUBARACHNOID HAEMORRHAGE [None]
  - THROMBOCYTOPENIA [None]
  - URINE OUTPUT DECREASED [None]
  - VASOSPASM [None]
